FAERS Safety Report 5565448-0 (Version None)
Quarter: 2007Q4

REPORT INFORMATION
  Report Type: 
  Country: None (occurrence: None)
  Receive Date: 20071218
  Receipt Date: 20071207
  Transmission Date: 20080405
  Serious: Yes (Other)
  Sender: FDA-Public Use
  Company Number: FI-PFIZER INC-2007071331

PATIENT
  Sex: Male

DRUGS (8)
  1. LIPITOR [Suspect]
     Indication: HYPERCHOLESTEROLAEMIA
     Route: 048
     Dates: start: 20030101, end: 20070822
  2. ALOE BARBADENSIS [Interacting]
     Dates: start: 20070501, end: 20070822
  3. OMEGA-3 [Concomitant]
     Route: 048
  4. DIFORMIN [Concomitant]
     Route: 048
  5. ORMOX [Concomitant]
     Indication: CORONARY ARTERY DISEASE
     Route: 048
  6. EMCONCOR [Concomitant]
     Indication: CORONARY ARTERY DISEASE
     Route: 048
  7. CARDACE [Concomitant]
     Indication: CORONARY ARTERY DISEASE
     Route: 048
  8. NITROGLYCERIN [Concomitant]
     Route: 048

REACTIONS (5)
  - BLOOD CREATINE PHOSPHOKINASE INCREASED [None]
  - DRUG INTERACTION [None]
  - LIVER FUNCTION TEST ABNORMAL [None]
  - MUSCULAR WEAKNESS [None]
  - SENSORY LOSS [None]
